FAERS Safety Report 10549209 (Version 1)
Quarter: 2014Q4

REPORT INFORMATION
  Report Type: Spontaneous
  Country: US (occurrence: None)
  Receive Date: 20141016
  Receipt Date: 20141016
  Transmission Date: 20150529
  Serious: Yes (Death)
  Sender: FDA-Public Use
  Company Number: CABO-14004507

PATIENT
  Age: 82 Year
  Sex: Female

DRUGS (12)
  1. COMETRIQ [Suspect]
     Active Substance: CABOZANTINIB S-MALATE
     Indication: RENAL CANCER
     Route: 048
     Dates: start: 20140618
  2. FLUCONAZOLE (FLUCONAZOLE) [Concomitant]
     Active Substance: FLUCONAZOLE
  3. MORPHINE (MORPHINE) [Concomitant]
  4. LATANOPROST (LATANOPROST) (NONE) [Concomitant]
     Active Substance: LATANOPROST
  5. TRAMADOL (TRAMADOL) [Concomitant]
     Active Substance: TRAMADOL
  6. MERIVA (CURCUMIN) [Concomitant]
  7. ATENOLOL (ATENOLOL) [Concomitant]
     Active Substance: ATENOLOL
  8. LEVOTHYROXINE (LEVOTHYROXINE) [Concomitant]
     Active Substance: LEVOTHYROXINE
  9. TYKERB (LAPATINIB DITOSYLATE MONOHYDRATE) [Concomitant]
  10. AMLODIPINE [Concomitant]
     Active Substance: AMLODIPINE BESYLATE
  11. PREDNISONE (PREDNISONE) [Concomitant]
     Active Substance: PREDNISONE
  12. TIMOLO (BENZALKONIUM CHLORIDE, TIMOLOL MEALEATE) [Concomitant]

REACTIONS (5)
  - Nausea [None]
  - Malignant neoplasm progression [None]
  - Diarrhoea [None]
  - Candida infection [None]
  - Off label use [None]

NARRATIVE: CASE EVENT DATE: 20140731
